FAERS Safety Report 20454110 (Version 1)
Quarter: 2022Q1

REPORT INFORMATION
  Report Type: Spontaneous
  Country: US (occurrence: US)
  Receive Date: 20220210
  Receipt Date: 20220210
  Transmission Date: 20220423
  Serious: Yes (Death, Life-Threatening, Hospitalization)
  Sender: FDA-Public Use
  Company Number: US-STRIDES ARCOLAB LIMITED-2022SP001066

PATIENT
  Age: 73 Year
  Sex: Female

DRUGS (1)
  1. AMLODIPINE [Suspect]
     Active Substance: AMLODIPINE BESYLATE
     Indication: Product used for unknown indication
     Dosage: 40 DOSAGE FORM (TABLET)
     Route: 048

REACTIONS (12)
  - Multiple organ dysfunction syndrome [Fatal]
  - Mental status changes [Fatal]
  - Agitation [Fatal]
  - Atrioventricular dissociation [Fatal]
  - Acute kidney injury [Fatal]
  - Shock [Fatal]
  - Intentional overdose [Fatal]
  - Suicide attempt [Fatal]
  - Toxicity to various agents [Fatal]
  - Hypotension [Fatal]
  - Metabolic acidosis [Fatal]
  - Hyperkalaemia [Fatal]
